FAERS Safety Report 9739088 (Version 1)
Quarter: 2013Q4

REPORT INFORMATION
  Report Type: Report from Study
  Country: PT (occurrence: PT)
  Receive Date: 20131209
  Receipt Date: 20131209
  Transmission Date: 20140711
  Serious: Yes (Disabling)
  Sender: FDA-Public Use
  Company Number: PT-US-EMD SERONO, INC.-7254599

PATIENT
  Age: 12 Year
  Sex: Female

DRUGS (2)
  1. SAIZEN [Suspect]
     Indication: TURNER^S SYNDROME
     Route: 058
     Dates: start: 20051010, end: 201308
  2. SAIZEN [Suspect]
     Dates: start: 201308, end: 201308

REACTIONS (1)
  - Brain neoplasm [Not Recovered/Not Resolved]
